FAERS Safety Report 6315034-X (Version None)
Quarter: 2009Q3

REPORT INFORMATION
  Report Type: 
  Country: None (occurrence: None)
  Receive Date: 20090819
  Receipt Date: 20090720
  Transmission Date: 20100115
  Serious: No
  Sender: FDA-Public Use
  Company Number: US-BAYER-200912600BCC

PATIENT
  Age: 74 Year
  Sex: Female
  Weight: 63 kg

DRUGS (6)
  1. ALEVE [Suspect]
     Indication: ARTHRITIS
     Dosage: TWO TABLET IN THE AFTERNOON AND ONE TABLET NEXT MORNING
     Route: 048
     Dates: start: 20060101, end: 20060101
  2. HYZAAR [Concomitant]
  3. PROTONIX [Concomitant]
  4. ASPIRIN [Concomitant]
  5. CALTRATE + D [Concomitant]
  6. BONIVA [Concomitant]

REACTIONS (2)
  - HYPERSENSITIVITY [None]
  - URTICARIA [None]
